FAERS Safety Report 15169271 (Version 1)
Quarter: 2018Q3

REPORT INFORMATION
  Report Type: Spontaneous
  Country: AR (occurrence: AR)
  Receive Date: 20180720
  Receipt Date: 20180720
  Transmission Date: 20181010
  Serious: Yes (Other)
  Sender: FDA-Public Use
  Company Number: AR-ALKEM LABORATORIES LIMITED-AR-ALKEM-2018-05507

PATIENT
  Age: 13 Year
  Sex: Female

DRUGS (4)
  1. PREDNISONE. [Suspect]
     Active Substance: PREDNISONE
     Dosage: UNK
  2. PREDNISONE. [Suspect]
     Active Substance: PREDNISONE
     Indication: AUTOIMMUNE HEPATITIS
     Dosage: 40 MG, QD
     Route: 065
  3. PREDNISONE. [Suspect]
     Active Substance: PREDNISONE
     Dosage: 20 MG, QD
     Route: 065
  4. MYCOPHENOLATE MOFETIL. [Suspect]
     Active Substance: MYCOPHENOLATE MOFETIL
     Indication: AUTOIMMUNE HEPATITIS
     Dosage: 1.5 G, QD
     Route: 065

REACTIONS (3)
  - Condition aggravated [Recovered/Resolved]
  - Epstein-Barr virus test positive [Unknown]
  - Drug ineffective [Unknown]
